FAERS Safety Report 19277298 (Version 2)
Quarter: 2021Q2

REPORT INFORMATION
  Report Type: Report from Study
  Country: None (occurrence: US)
  Receive Date: 20210519
  Receipt Date: 20210521
  Transmission Date: 20210717
  Serious: Yes (Hospitalization, Other)
  Sender: FDA-Public Use
  Company Number: US-ABBVIE-21K-163-3909137-00

PATIENT
  Age: 56 Year
  Sex: Male
  Weight: 68.1 kg

DRUGS (3)
  1. DUOPA [Suspect]
     Active Substance: CARBIDOPA\LEVODOPA
     Indication: PRODUCT USED FOR UNKNOWN INDICATION
     Route: 050
     Dates: start: 20161230
  2. DUOPA [Suspect]
     Active Substance: CARBIDOPA\LEVODOPA
     Route: 050
     Dates: start: 20180614, end: 2018
  3. DUOPA [Suspect]
     Active Substance: CARBIDOPA\LEVODOPA
     Route: 050
     Dates: start: 201809

REACTIONS (7)
  - Stoma site extravasation [Unknown]
  - Abdominal pain upper [Recovering/Resolving]
  - Gastrointestinal stoma complication [Recovered/Resolved]
  - Aspiration [Recovered/Resolved]
  - Device breakage [Recovered/Resolved]
  - Arthralgia [Recovering/Resolving]
  - Fall [Recovered/Resolved]

NARRATIVE: CASE EVENT DATE: 202012
